FAERS Safety Report 21735944 (Version 2)
Quarter: 2022Q4

REPORT INFORMATION
  Report Type: Spontaneous
  Country: US (occurrence: US)
  Receive Date: 20221215
  Receipt Date: 20221227
  Transmission Date: 20230113
  Serious: No
  Sender: FDA-Public Use
  Company Number: US-PFIZER INC-PV202200122343

PATIENT
  Age: 73 Year

DRUGS (6)
  1. PREMARIN [Suspect]
     Active Substance: ESTROGENS, CONJUGATED
     Dosage: UNK
  2. ATENOLOL [Concomitant]
     Active Substance: ATENOLOL
     Indication: Blood pressure measurement
     Dosage: 12.5 MG, 1X/DAY
  3. LOSARTAN [Concomitant]
     Active Substance: LOSARTAN
     Indication: Blood pressure measurement
     Dosage: 100 MG, 1X/DAY
  4. POTASSIUM [Concomitant]
     Active Substance: POTASSIUM
     Indication: Blood pressure measurement
     Dosage: 20 MG, 1X/DAY
  5. ALBUTEROL [Concomitant]
     Active Substance: ALBUTEROL
     Dosage: UNK
  6. AMITRIPTYLINE [Concomitant]
     Active Substance: AMITRIPTYLINE
     Indication: Nerve injury
     Dosage: UNK, 1X/DAY(AT NIGHT ONCE)

REACTIONS (1)
  - Therapeutic product effect incomplete [Unknown]
